FAERS Safety Report 21866874 (Version 1)
Quarter: 2023Q1

REPORT INFORMATION
  Report Type: Spontaneous
  Country: CN (occurrence: CN)
  Receive Date: 20230116
  Receipt Date: 20230116
  Transmission Date: 20230418
  Serious: Yes (Hospitalization, Other)
  Sender: FDA-Public Use
  Company Number: CN-PFIZER INC-PV202300007078

PATIENT
  Age: 65 Year
  Sex: Male

DRUGS (15)
  1. SOLU-MEDROL [Suspect]
     Active Substance: METHYLPREDNISOLONE SODIUM SUCCINATE
     Indication: B-cell type acute leukaemia
     Dosage: 85 MG (D1-14)
     Dates: start: 20210720, end: 20210802
  2. CYTARABINE [Suspect]
     Active Substance: CYTARABINE
     Dosage: 50 MG
     Route: 037
     Dates: start: 20210816
  3. METHOTREXATE SODIUM [Suspect]
     Active Substance: METHOTREXATE SODIUM
     Dosage: 10 MG
     Route: 037
     Dates: start: 20210816
  4. IDARUBICIN HYDROCHLORIDE [Suspect]
     Active Substance: IDARUBICIN HYDROCHLORIDE
     Indication: B-cell type acute leukaemia
     Dosage: 18 MG (D1)
     Dates: start: 20210720, end: 20210720
  5. IDARUBICIN HYDROCHLORIDE [Suspect]
     Active Substance: IDARUBICIN HYDROCHLORIDE
     Dosage: 15 MG (D2-D3)
     Dates: start: 20210721, end: 20210722
  6. VINCRISTINE [Suspect]
     Active Substance: VINCRISTINE
     Indication: B-cell type acute leukaemia
     Dosage: 2 MG (D1, 8, 15, 22)
     Dates: start: 20210720, end: 20210810
  7. CYCLOPHOSPHAMIDE [Suspect]
     Active Substance: CYCLOPHOSPHAMIDE
     Indication: B-cell type acute leukaemia
     Dosage: 1500 MG (D1)
     Dates: start: 20210720, end: 20210720
  8. DEXAMETHASONE [Suspect]
     Active Substance: DEXAMETHASONE
     Dosage: 10 MG
     Route: 037
     Dates: start: 20210816
  9. PREDNISONE [Suspect]
     Active Substance: PREDNISONE
     Indication: Chemotherapy
     Dosage: 80 MG (D1)
     Dates: start: 20210913
  10. PREDNISONE [Suspect]
     Active Substance: PREDNISONE
     Dosage: 80 MG (D1)
     Dates: start: 20211015
  11. PREDNISONE [Suspect]
     Active Substance: PREDNISONE
     Dosage: 80 MG, 1X/DAY (D2-7)
     Route: 048
  12. FLUMATINIB [Suspect]
     Active Substance: FLUMATINIB
     Dosage: 0.6 G, 1X/DAY
     Route: 048
     Dates: start: 20210816
  13. FLUMATINIB [Suspect]
     Active Substance: FLUMATINIB
     Dosage: 0.6 G, 1X/DAY
     Route: 048
  14. VINDESINE [Suspect]
     Active Substance: VINDESINE
     Dosage: 4 MG (D1)
     Dates: start: 20210913
  15. VINDESINE [Suspect]
     Active Substance: VINDESINE
     Dosage: 4 MG (D1)
     Dates: start: 20211015

REACTIONS (6)
  - Acute lymphocytic leukaemia recurrent [Unknown]
  - Klebsiella sepsis [Unknown]
  - Capillary leak syndrome [Unknown]
  - Myelosuppression [Unknown]
  - Hepatic failure [Unknown]
  - Electrolyte imbalance [Unknown]
